FAERS Safety Report 11964609 (Version 1)
Quarter: 2016Q1

REPORT INFORMATION
  Report Type: Spontaneous
  Country: FR (occurrence: FR)
  Receive Date: 20160127
  Receipt Date: 20160127
  Transmission Date: 20160526
  Serious: Yes (Hospitalization)
  Sender: FDA-Public Use
  Company Number: FR-ROCHE-1699979

PATIENT
  Age: 65 Year
  Sex: Female

DRUGS (2)
  1. AVASTIN [Suspect]
     Active Substance: BEVACIZUMAB
     Indication: BREAST CANCER RECURRENT
     Route: 042
     Dates: start: 201506, end: 201509
  2. PACLITAXEL. [Concomitant]
     Active Substance: PACLITAXEL

REACTIONS (3)
  - Portal hypertension [Not Recovered/Not Resolved]
  - Hepatic cirrhosis [Not Recovered/Not Resolved]
  - Varices oesophageal [Not Recovered/Not Resolved]

NARRATIVE: CASE EVENT DATE: 201510
